FAERS Safety Report 9183993 (Version 1)
Quarter: 2012Q4

REPORT INFORMATION
  Report Type: 
  Country: US (occurrence: US)
  Receive Date: 20121030
  Receipt Date: 20121030
  Transmission Date: 20130627
  Serious: No
  Sender: FDA-Public Use
  Company Number: US-009507513-1210USA010505

PATIENT
  Sex: Female

DRUGS (1)
  1. NASONEX [Suspect]
     Indication: SEASONAL ALLERGY
     Dosage: 50 microgram 1 standard dose of 17
     Route: 055
     Dates: start: 201207

REACTIONS (2)
  - Seasonal allergy [Unknown]
  - Drug dose omission [Unknown]
